FAERS Safety Report 6416197-8 (Version None)
Quarter: 2009Q4

REPORT INFORMATION
  Report Type: 
  Country: None (occurrence: None)
  Receive Date: 20091027
  Receipt Date: 20091021
  Transmission Date: 20100525
  Serious: Yes (Other)
  Sender: FDA-Public Use
  Company Number: GB-TEVA-213195ISR

PATIENT
  Sex: Male
  Weight: 82.55 kg

DRUGS (2)
  1. METFORMIN HCL [Suspect]
  2. TRAMADOL HCL [Interacting]

REACTIONS (4)
  - ASTHENIA [None]
  - DECREASED APPETITE [None]
  - DRUG INTERACTION [None]
  - NAUSEA [None]
